FAERS Safety Report 7519261-5 (Version None)
Quarter: 2011Q2

REPORT INFORMATION
  Report Type: 
  Country: None (occurrence: None)
  Receive Date: 20110602
  Receipt Date: 20110524
  Transmission Date: 20111010
  Serious: Yes (Hospitalization, Other)
  Sender: FDA-Public Use
  Company Number: BR-ASTRAZENECA-2011SE32109

PATIENT
  Age: 67 Year
  Sex: Female
  Weight: 70 kg

DRUGS (6)
  1. LOVAZA [Concomitant]
     Route: 048
  2. CRESTOR [Suspect]
     Indication: HYPERCHOLESTEROLAEMIA
     Route: 048
     Dates: start: 20030101, end: 20110301
  3. CRESTOR [Suspect]
     Route: 048
     Dates: start: 20110301
  4. PURAN [Concomitant]
     Indication: HYPOTHYROIDISM
     Dosage: ONCE DAILY
     Route: 048
     Dates: start: 20010101
  5. CONDROITINA [Concomitant]
     Indication: OSTEOARTHRITIS
     Route: 048
     Dates: start: 20050101
  6. LOSARTAN POTASSIUM [Concomitant]
     Indication: HYPERTENSION
     Route: 048
     Dates: start: 20080101

REACTIONS (5)
  - SURGERY [None]
  - OSTEOARTHRITIS [None]
  - BLOOD CHOLESTEROL INCREASED [None]
  - DRUG INEFFECTIVE [None]
  - PAIN IN EXTREMITY [None]
